FAERS Safety Report 8418080-5 (Version None)
Quarter: 2012Q2

REPORT INFORMATION
  Report Type: 
  Country: None (occurrence: None)
  Receive Date: 20120604
  Receipt Date: 20120604
  Transmission Date: 20120825
  Serious: Yes (Hospitalization)
  Sender: FDA-Public Use
  Company Number: None

PATIENT
  Sex: Female
  Weight: 51.8 kg

DRUGS (2)
  1. ZORTRESS [Suspect]
     Dosage: 0.25MG 3 PILLS BID PO
     Route: 048
     Dates: start: 20120504
  2. MYCOPHENOLATE MOFETIL [Suspect]
     Indication: RENAL TRANSPLANT
     Dosage: 250MG 4 CAPS BID PO
     Route: 048
     Dates: start: 20110901, end: 20120411

REACTIONS (5)
  - CYTOMEGALOVIRUS INFECTION [None]
  - TOXICITY TO VARIOUS AGENTS [None]
  - BACTERIAL INFECTION [None]
  - VIRAL INFECTION [None]
  - ANAEMIA [None]
